FAERS Safety Report 26216978 (Version 1)
Quarter: 2025Q4

REPORT INFORMATION
  Report Type: Report from Study
  Country: US (occurrence: US)
  Receive Date: 20251231
  Receipt Date: 20251231
  Transmission Date: 20260117
  Serious: Yes (Hospitalization, Other)
  Sender: ABBVIE
  Company Number: US-ABBVIE-6610600

PATIENT
  Age: 64 Year
  Sex: Female

DRUGS (1)
  1. LINZESS [Suspect]
     Active Substance: LINACLOTIDE
     Indication: Product used for unknown indication
     Route: 048
     Dates: start: 20230101

REACTIONS (7)
  - Myocardial infarction [Unknown]
  - Constipation [Unknown]
  - Gallbladder disorder [Unknown]
  - Rotator cuff repair [Unknown]
  - Meniscus operation [Unknown]
  - Cholecystectomy [Unknown]
  - Periarthritis [Unknown]

NARRATIVE: CASE EVENT DATE: 20250101
